FAERS Safety Report 20291221 (Version 1)
Quarter: 2022Q1

REPORT INFORMATION
  Report Type: Spontaneous
  Country: US (occurrence: None)
  Receive Date: 20220103
  Receipt Date: 20220103
  Transmission Date: 20220423
  Serious: Yes (Hospitalization, Disabling)
  Sender: FDA-Public Use
  Company Number: None

PATIENT
  Age: 34 Year
  Sex: Female
  Weight: 47.25 kg

DRUGS (4)
  1. XANAX [Suspect]
     Active Substance: ALPRAZOLAM
     Indication: Fear
     Dosage: FREQUENCY : AS NEEDED;?
     Route: 048
     Dates: start: 20050601, end: 20151114
  2. XANAX [Suspect]
     Active Substance: ALPRAZOLAM
     Indication: Anxiety
  3. ZINC [Concomitant]
     Active Substance: ZINC
  4. VITAMIN C [Concomitant]
     Active Substance: ASCORBIC ACID

REACTIONS (20)
  - Panic attack [None]
  - Anxiety [None]
  - Withdrawal syndrome [None]
  - Pyrexia [None]
  - Hyperhidrosis [None]
  - Chills [None]
  - Hallucination [None]
  - Insomnia [None]
  - Suicidal ideation [None]
  - Psychotic disorder [None]
  - Neuralgia [None]
  - Loss of consciousness [None]
  - Speech disorder [None]
  - Visual impairment [None]
  - Tinnitus [None]
  - Head discomfort [None]
  - Fear [None]
  - Feeling abnormal [None]
  - Disability [None]
  - Economic problem [None]

NARRATIVE: CASE EVENT DATE: 20151114
